FAERS Safety Report 21885098 (Version 2)
Quarter: 2023Q1

REPORT INFORMATION
  Report Type: Report from Study
  Country: US (occurrence: US)
  Receive Date: 20230119
  Receipt Date: 20230131
  Transmission Date: 20230418
  Serious: Yes (Hospitalization, Other)
  Sender: FDA-Public Use
  Company Number: US-GILEAD-2023-0613213

PATIENT
  Sex: Male

DRUGS (1)
  1. SOFOSBUVIR\VELPATASVIR [Suspect]
     Active Substance: SOFOSBUVIR\VELPATASVIR
     Indication: Hepatitis C
     Dosage: 400MG/100MG, QD
     Route: 048
     Dates: start: 20220920

REACTIONS (7)
  - Internal haemorrhage [Unknown]
  - Haemoglobin decreased [Unknown]
  - Hallucination [Unknown]
  - Rash [Unknown]
  - Pain [Unknown]
  - Discomfort [Unknown]
  - Muscle spasms [Not Recovered/Not Resolved]
